FAERS Safety Report 22984252 (Version 3)
Quarter: 2023Q4

REPORT INFORMATION
  Report Type: Report from Study
  Country: US (occurrence: US)
  Receive Date: 20230926
  Receipt Date: 20231204
  Transmission Date: 20240109
  Serious: Yes (Hospitalization, Other)
  Sender: FDA-Public Use
  Company Number: US-ULTRAGENYX PHARMACEUTICAL INC.-US-UGX-23-01086

PATIENT
  Sex: Female

DRUGS (3)
  1. DOJOLVI [Suspect]
     Active Substance: TRIHEPTANOIN
     Indication: Fatty acid oxidation disorder
     Dosage: 8 MILLILITER, Q4H, VIA G TUBE
     Dates: start: 202101
  2. DOJOLVI [Suspect]
     Active Substance: TRIHEPTANOIN
     Indication: Hypertrophic cardiomyopathy
     Dosage: 7 MILLILITER, Q4H
  3. DOJOLVI [Suspect]
     Active Substance: TRIHEPTANOIN
     Dosage: 9 MILLILITER, Q4H

REACTIONS (10)
  - Metabolic disorder [Unknown]
  - Pseudomonas infection [Unknown]
  - Renal failure [Unknown]
  - Cardiomyopathy [Unknown]
  - Adverse event [Unknown]
  - Illness [Unknown]
  - Rhabdomyolysis [Unknown]
  - Thrombosis [Not Recovered/Not Resolved]
  - Cardiac disorder [Not Recovered/Not Resolved]
  - Nasopharyngitis [Not Recovered/Not Resolved]
